FAERS Safety Report 6473209-3 (Version None)
Quarter: 2009Q4

REPORT INFORMATION
  Report Type: 
  Country: None (occurrence: None)
  Receive Date: 20091204
  Receipt Date: 20080821
  Transmission Date: 20100525
  Serious: Yes (Hospitalization)
  Sender: FDA-Public Use
  Company Number: GB-ELI_LILLY_AND_COMPANY-GB200807001057

PATIENT
  Sex: Female

DRUGS (4)
  1. ZYPREXA [Suspect]
     Indication: BIPOLAR DISORDER
     Dosage: 2.5 MG, UNK
     Route: 048
     Dates: start: 20040101, end: 20080101
  2. ZYPREXA [Suspect]
     Dosage: 5 MG, UNK
  3. TEGRETOL RETARD [Concomitant]
     Indication: BIPOLAR DISORDER
     Dosage: 600 MG, UNK
     Route: 048
     Dates: start: 20080101
  4. LORAZEPAM [Concomitant]
     Dosage: 1 MG, UNK
     Route: 048

REACTIONS (5)
  - ABDOMINAL PAIN UPPER [None]
  - DIARRHOEA [None]
  - IRRITABLE BOWEL SYNDROME [None]
  - PSYCHIATRIC EVALUATION [None]
  - WEIGHT DECREASED [None]
